FAERS Safety Report 17161393 (Version 2)
Quarter: 2020Q1

REPORT INFORMATION
  Report Type: Report from Study
  Country: US (occurrence: US)
  Receive Date: 20191216
  Receipt Date: 20200117
  Transmission Date: 20200409
  Serious: Yes (Life-Threatening, Hospitalization, Other)
  Sender: FDA-Public Use
  Company Number: US-UCBSA-2019053113

PATIENT
  Sex: Female
  Weight: 90.72 kg

DRUGS (1)
  1. LEVETIRACETAM. [Suspect]
     Active Substance: LEVETIRACETAM
     Indication: SEIZURE
     Dosage: 200 MILLIGRAM, 2X/DAY (BID)
     Route: 048
     Dates: start: 2009

REACTIONS (2)
  - Stevens-Johnson syndrome [Unknown]
  - Gastrointestinal haemorrhage [Unknown]

NARRATIVE: CASE EVENT DATE: 2009
